FAERS Safety Report 6192340-3 (Version None)
Quarter: 2009Q2

REPORT INFORMATION
  Report Type: 
  Country: None (occurrence: None)
  Receive Date: 20090518
  Receipt Date: 20090506
  Transmission Date: 20091009
  Serious: Yes (Other)
  Sender: FDA-Public Use
  Company Number: US-RANBAXY-2009RR-23987

PATIENT
  Age: 23 Year
  Sex: Female

DRUGS (2)
  1. DOXYCYCLINE TABLETS [Suspect]
     Indication: ACNE
     Dosage: 100 MG, BID
     Route: 048
  2. TRETINOIN [Concomitant]
     Indication: ACNE
     Dosage: 0.04 %, UNK
     Route: 061

REACTIONS (1)
  - BENIGN INTRACRANIAL HYPERTENSION [None]
